FAERS Safety Report 12942564 (Version 1)
Quarter: 2016Q4

REPORT INFORMATION
  Report Type: Other
  Country: None (occurrence: US)
  Receive Date: 20161114
  Receipt Date: 20161114
  Transmission Date: 20170207
  Serious: Yes (Other)
  Sender: FDA-Public Use
  Company Number: US-GUTHY-RENKER LLC-1059521

PATIENT
  Age: 61 Year
  Sex: Female

DRUGS (2)
  1. THYROID PREPARATION [Concomitant]
     Active Substance: UNSPECIFIED INGREDIENT
  2. MEANINGFUL BEAUTY CINDY CRAWFORD ANTIOXIDANT SPF 20 UVA/UVB [Suspect]
     Active Substance: AVOBENZONE\OCTINOXATE\OCTISALATE\OXYBENZONE
     Indication: PROPHYLAXIS AGAINST SOLAR RADIATION
     Route: 061
     Dates: start: 20161028, end: 20161030

REACTIONS (3)
  - Pain [None]
  - Dermal cyst [Recovering/Resolving]
  - Swelling [None]

NARRATIVE: CASE EVENT DATE: 20161030
